FAERS Safety Report 19121143 (Version 1)
Quarter: 2021Q2

REPORT INFORMATION
  Report Type: Spontaneous
  Country: LT (occurrence: LT)
  Receive Date: 20210412
  Receipt Date: 20210412
  Transmission Date: 20210717
  Serious: Yes (Other)
  Sender: FDA-Public Use
  Company Number: LT-MYLANLABS-2021M1021375

PATIENT
  Age: 72 Year
  Sex: Female

DRUGS (6)
  1. VALSACOR [Concomitant]
     Active Substance: VALSARTAN
     Dosage: 160 MILLIGRAM (ONLY 2 TABLETS USED AND DISCONTINUED)
     Dates: start: 202103, end: 202103
  2. RELIFEX [Suspect]
     Active Substance: NABUMETONE
     Dosage: SECOND DOSAGE OF RELIFEX
     Dates: end: 202103
  3. VALSACOMBI [Concomitant]
     Active Substance: HYDROCHLOROTHIAZIDE\VALSARTAN
     Dosage: 160/12.5 MG
  4. TENAXUM [Concomitant]
     Active Substance: RILMENIDINE
     Dosage: 1 MILLIGRAM
  5. RELIFEX [Suspect]
     Active Substance: NABUMETONE
     Indication: PAIN IN EXTREMITY
     Dosage: 1 GRAM (FIRST DOSE)
     Route: 048
     Dates: start: 2021
  6. METOPROLOL. [Concomitant]
     Active Substance: METOPROLOL
     Dosage: 50 MILLIGRAM

REACTIONS (2)
  - Poisoning [Recovering/Resolving]
  - Nausea [Recovering/Resolving]

NARRATIVE: CASE EVENT DATE: 202103
